FAERS Safety Report 22593690 (Version 1)
Quarter: 2023Q2

REPORT INFORMATION
  Report Type: Spontaneous
  Country: DE (occurrence: DE)
  Receive Date: 20230613
  Receipt Date: 20230613
  Transmission Date: 20230722
  Serious: Yes (Other)
  Sender: FDA-Public Use
  Company Number: DE-MYLANLABS-2023M1062130

PATIENT
  Age: 64 Year
  Sex: Male

DRUGS (10)
  1. OXALIPLATIN [Suspect]
     Active Substance: OXALIPLATIN
     Indication: Colorectal cancer metastatic
     Dosage: 85 MILLIGRAM/SQ. METER, CYCLE (ON DAY 1 IN 14-DAYS CYCLE)
     Route: 065
     Dates: start: 201003
  2. FLUOROURACIL [Suspect]
     Active Substance: FLUOROURACIL
     Indication: Colorectal cancer metastatic
     Dosage: 400 MILLIGRAM/SQ. METER, CYCLE (BOLUS DOSE ON DAYS 1 AND 2 IN 14-DAYS CYCLE)
     Route: 065
     Dates: start: 201003
  3. FLUOROURACIL [Suspect]
     Active Substance: FLUOROURACIL
     Dosage: 600 MILLIGRAM/SQ. METER, CYCLE (MAINTENANCE DOSE; ON DAYS 1 AND 2 EVERY 14 DAYS)
     Route: 065
     Dates: start: 2010
  4. FLUOROURACIL [Suspect]
     Active Substance: FLUOROURACIL
     Dosage: 400 MILLIGRAM/SQ. METER, CYCLE (BOLUS DOSE ON DAYS 1 AND 2 IN 14-DAYS CYCLE; RECEIVED 8 CYCLES...
     Route: 065
     Dates: start: 201608
  5. FLUOROURACIL [Suspect]
     Active Substance: FLUOROURACIL
     Dosage: 600 MILLIGRAM/SQ. METER, CYCLE (MAINTENANCE DOSE; ON DAYS 1 AND 2 EVERY 14 DAYS; RECEIVED 8...
     Route: 065
     Dates: start: 2016, end: 201612
  6. IRINOTECAN [Suspect]
     Active Substance: IRINOTECAN
     Indication: Colorectal cancer metastatic
     Dosage: 180 MILLIGRAM/SQ. METER, CYCLE (ON DAY 1 IN A 14-DAY CYCLE; RECEIVED 8 CYCLES)
     Route: 065
     Dates: start: 201608, end: 201612
  7. CETUXIMAB [Suspect]
     Active Substance: CETUXIMAB
     Indication: Colorectal cancer metastatic
     Dosage: 250 MILLIGRAM/SQ. METER, QW
     Route: 065
     Dates: start: 201003
  8. LEUCOVORIN [Suspect]
     Active Substance: LEUCOVORIN
     Indication: Colorectal cancer metastatic
     Dosage: 200 MILLIGRAM/SQ. METER, CYCLE (ON DAYS 1 AND 2 IN 14-DAYS CYCLE; PART OF FOLFOX4 REGIMEN)
     Route: 065
     Dates: start: 201003
  9. LEUCOVORIN [Suspect]
     Active Substance: LEUCOVORIN
     Dosage: 200 MILLIGRAM/SQ. METER,CYCLE(ON DAYS 1 AND 2 IN 14-DAYS CYCLE;RECEIVED 8 CYCLES AS FOLFIRI REGIMEN)
     Route: 065
     Dates: start: 201608, end: 201612
  10. BEVACIZUMAB [Suspect]
     Active Substance: BEVACIZUMAB
     Indication: Colorectal cancer metastatic
     Dosage: 5 MILLIGRAM/KILOGRAM, Q2W (EVERY 14 DAYS, RECEIVED 8 CYCLES)
     Route: 065
     Dates: start: 201608, end: 201612

REACTIONS (2)
  - Drug ineffective [Unknown]
  - Disease progression [Unknown]
